FAERS Safety Report 4482042-3 (Version None)
Quarter: 2004Q4

REPORT INFORMATION
  Report Type: 
  Country: None (occurrence: None)
  Receive Date: 20041020
  Receipt Date: 20041020
  Transmission Date: 20050328
  Serious: Yes (Disabling)
  Sender: FDA-Public Use
  Company Number: None

PATIENT
  Age: 31 Year
  Sex: Female
  Weight: 88.905 kg

DRUGS (2)
  1. ZOLOFT [Suspect]
     Indication: ANXIETY
     Dosage: 100MG  DAILY ORAL
     Route: 048
     Dates: start: 20011001, end: 20041015
  2. ZOLOFT [Suspect]
     Indication: DEPRESSION
     Dosage: 100MG  DAILY ORAL
     Route: 048
     Dates: start: 20011001, end: 20041015

REACTIONS (2)
  - DRUG WITHDRAWAL SYNDROME [None]
  - FEELING ABNORMAL [None]
